FAERS Safety Report 8062160-3 (Version None)
Quarter: 2012Q1

REPORT INFORMATION
  Report Type: 
  Country: None (occurrence: None)
  Receive Date: 20120118
  Receipt Date: 20120109
  Transmission Date: 20120608
  Serious: Yes (Death)
  Sender: FDA-Public Use
  Company Number: JPI-P-014769

PATIENT
  Age: 78 Year
  Sex: Male

DRUGS (1)
  1. XYREM [Suspect]
     Indication: CATAPLEXY
     Dosage: 7.5 GM (3.75 GM, 2 IN 1 D), ORAL
     Dates: start: 20021029, end: 20070206

REACTIONS (2)
  - LUNG NEOPLASM MALIGNANT [None]
  - BRONCHIAL CARCINOMA [None]
